FAERS Safety Report 9048484 (Version 1)
Quarter: 2013Q1

REPORT INFORMATION
  Report Type: Spontaneous
  Country: US (occurrence: None)
  Receive Date: 20130130
  Receipt Date: 20130130
  Transmission Date: 20140127
  Serious: Yes (Hospitalization)
  Sender: FDA-Public Use
  Company Number: None

PATIENT
  Age: 50 Year
  Sex: Female
  Weight: 71 kg

DRUGS (10)
  1. MOBIC [Suspect]
     Indication: OSTEOARTHRITIS
     Dosage: 7.5 MG PO, BID
  2. ECASA [Suspect]
     Indication: OSTEOARTHRITIS
     Dosage: 81 MG PO DAILY
  3. SYNTHROID [Concomitant]
  4. ATENOLOL [Concomitant]
  5. XANAX [Concomitant]
  6. ARICEPT [Concomitant]
  7. LOTRISONE [Concomitant]
  8. RISPERIDONE [Concomitant]
  9. MVI [Concomitant]
  10. ULTRAM [Concomitant]

REACTIONS (3)
  - Upper gastrointestinal haemorrhage [None]
  - Duodenal ulcer haemorrhage [None]
  - Haemoglobin decreased [None]
